FAERS Safety Report 7773130-4 (Version None)
Quarter: 2011Q3

REPORT INFORMATION
  Report Type: 
  Country: None (occurrence: None)
  Receive Date: 20110922
  Receipt Date: 20100412
  Transmission Date: 20111222
  Serious: No
  Sender: FDA-Public Use
  Company Number: US-ASTRAZENECA-2009UW10343

PATIENT
  Age: 14862 Day
  Sex: Male

DRUGS (5)
  1. SEROQUEL [Suspect]
     Dosage: 100-300 MG, DISPENSED
     Route: 048
     Dates: start: 20031204, end: 20070316
  2. FLUOXETINE [Concomitant]
     Dates: start: 20031204
  3. AMBIEN [Concomitant]
     Dates: start: 20031204
  4. DIAZEPAM [Concomitant]
     Dates: start: 20040122
  5. FLEXERIL [Concomitant]
     Route: 048
     Dates: start: 20040209

REACTIONS (3)
  - METABOLIC SYNDROME [None]
  - DIABETES MELLITUS INADEQUATE CONTROL [None]
  - DIABETES MELLITUS [None]
